FAERS Safety Report 8912776 (Version 3)
Quarter: 2013Q1

REPORT INFORMATION
  Report Type: Report from Study
  Country: US (occurrence: US)
  Receive Date: 20121116
  Receipt Date: 20130222
  Transmission Date: 20140127
  Serious: Yes (Hospitalization)
  Sender: FDA-Public Use
  Company Number: US-ABBOTT-12P-163-0993611-00

PATIENT
  Age: 80 None
  Sex: Female

DRUGS (10)
  1. HUMIRA [Suspect]
     Indication: COLITIS ULCERATIVE
     Dates: start: 201005
  2. HUMIRA [Suspect]
     Indication: CROHN^S DISEASE
     Dates: start: 201209
  3. COREG [Concomitant]
     Indication: CARDIAC FAILURE CONGESTIVE
  4. FLONASE [Concomitant]
     Indication: PRODUCT USED FOR UNKNOWN INDICATION
     Dosage: ONCE DAILY
  5. IMODIUM [Concomitant]
     Indication: PRODUCT USED FOR UNKNOWN INDICATION
  6. TYLENOL EXTRA-STRENGTH [Concomitant]
     Indication: PRODUCT USED FOR UNKNOWN INDICATION
  7. XANAX [Concomitant]
     Indication: PRODUCT USED FOR UNKNOWN INDICATION
     Dosage: 0.25MG ONE THREE TIMES DAILY, PRN
  8. CALCIUM + VITAMIN D [Concomitant]
     Indication: VITAMIN SUPPLEMENTATION
  9. MERCAPTOPURINE [Concomitant]
     Indication: COLITIS ULCERATIVE
  10. PEPCID [Concomitant]
     Indication: DYSPEPSIA
     Dates: start: 20121109

REACTIONS (13)
  - Blood pressure abnormal [Recovered/Resolved]
  - Nausea [Recovered/Resolved]
  - Diarrhoea [Not Recovered/Not Resolved]
  - Drug ineffective [Not Recovered/Not Resolved]
  - Hypophagia [Unknown]
  - Alopecia [Unknown]
  - Asthenia [Not Recovered/Not Resolved]
  - Retching [Unknown]
  - Productive cough [Unknown]
  - Weight decreased [Not Recovered/Not Resolved]
  - Breath sounds abnormal [Unknown]
  - Rectal haemorrhage [Unknown]
  - Inappropriate schedule of drug administration [Not Recovered/Not Resolved]
